FAERS Safety Report 6741202-9 (Version None)
Quarter: 2010Q2

REPORT INFORMATION
  Report Type: 
  Country: None (occurrence: None)
  Receive Date: 20100526
  Receipt Date: 20100521
  Transmission Date: 20101027
  Serious: Yes (Death)
  Sender: FDA-Public Use
  Company Number: JP-BRACCO-003533

PATIENT
  Age: 82 Year
  Sex: Male

DRUGS (2)
  1. IOPAMIDOL [Suspect]
     Indication: DIAGNOSTIC PROCEDURE
     Route: 042
     Dates: start: 20100518, end: 20100518
  2. IOPAMIDOL [Suspect]
     Indication: ABDOMINAL NEOPLASM
     Route: 042
     Dates: start: 20100518, end: 20100518

REACTIONS (1)
  - ANAPHYLACTIC SHOCK [None]
